FAERS Safety Report 7861242-6 (Version None)
Quarter: 2011Q4

REPORT INFORMATION
  Report Type: 
  Country: None (occurrence: None)
  Receive Date: 20111027
  Receipt Date: 20111021
  Transmission Date: 20120403
  Serious: Yes (Other)
  Sender: FDA-Public Use
  Company Number: ES-PFIZER INC-2011255359

PATIENT
  Age: 58 Year
  Sex: Male

DRUGS (5)
  1. NELFINAVIR MESYLATE [Suspect]
     Dosage: UNK
     Dates: start: 20000101, end: 20030101
  2. ZIDOVUDINE [Suspect]
     Dosage: UNK
     Dates: start: 20000101, end: 20030101
  3. ZIDOVUDINE [Suspect]
     Dosage: UNK
     Dates: start: 20040901, end: 20080601
  4. LAMIVUDINE [Suspect]
     Dosage: UNK
     Dates: start: 20040901
  5. LAMIVUDINE [Suspect]
     Indication: ANTIVIRAL TREATMENT
     Dosage: UNK
     Dates: start: 20000101, end: 20030101

REACTIONS (6)
  - HEPATIC ENZYME ABNORMAL [None]
  - HAEMATOTOXICITY [None]
  - CHOLESTASIS [None]
  - VIROLOGIC FAILURE [None]
  - ASCITES [None]
  - PORTAL HYPERTENSION [None]
